FAERS Safety Report 18659817 (Version 1)
Quarter: 2020Q4

REPORT INFORMATION
  Report Type: Spontaneous
  Country: US (occurrence: US)
  Receive Date: 20201224
  Receipt Date: 20201224
  Transmission Date: 20210114
  Serious: No
  Sender: FDA-Public Use
  Company Number: US-DRREDDYS-USA/USA/20/0130139

PATIENT
  Age: 19 Year
  Sex: Male

DRUGS (1)
  1. ZENATANE [Suspect]
     Active Substance: ISOTRETINOIN
     Indication: PRODUCT USED FOR UNKNOWN INDICATION
     Dosage: RMA ISSUE DATE 7/9/2020 6:45:03 PM, 9/3/2020 3:33:30 PM,  10/7/2020 6:26:51 PM, 11/10/2020 4:38:46 P
     Route: 048

REACTIONS (1)
  - Abdominal pain upper [Unknown]
